FAERS Safety Report 8951440 (Version 2)
Quarter: 2013Q3

REPORT INFORMATION
  Report Type: Spontaneous
  Country: JP (occurrence: JP)
  Receive Date: 20121206
  Receipt Date: 20130813
  Transmission Date: 20140515
  Serious: Yes (Death, Hospitalization, Other)
  Sender: FDA-Public Use
  Company Number: JP-CUBIST PHARMACEUTICAL, INC.-2012S1000815

PATIENT
  Age: 75 Year
  Sex: Female
  Weight: 54 kg

DRUGS (23)
  1. CUBICIN [Suspect]
     Indication: RETROPERITONEAL ABSCESS
     Dosage: 350 MG, QD
     Route: 041
     Dates: start: 20120907, end: 20120927
  2. CUBICIN [Suspect]
     Indication: OFF LABEL USE
     Dosage: 6.48 MG/KG, QD
     Dates: start: 20120907, end: 20120927
  3. ALINAMIN-F [Concomitant]
     Indication: PRODUCT USED FOR UNKNOWN INDICATION
     Dosage: UNK UNK, UNK
     Route: 048
  4. FOLIAMIN [Concomitant]
     Indication: ANAEMIA
     Dosage: UNK UNK, UNK
     Route: 048
     Dates: start: 20120831
  5. UNISIA [Concomitant]
     Indication: HYPERTENSION
     Dosage: UNK UNK, UNK
     Route: 048
  6. ISOSORBIDE MONONITRATE [Concomitant]
     Indication: ANGINA PECTORIS
     Dosage: UNK UNK, UNK
     Route: 048
  7. ALFAROL [Concomitant]
     Indication: PRODUCT USED FOR UNKNOWN INDICATION
     Dosage: UNK UNK, UNK
     Route: 048
  8. ONEALFA [Concomitant]
     Indication: PROPHYLAXIS
     Dosage: UNK UNK, UNK
     Route: 048
  9. FEXOFENADINE HYDROCHLORIDE [Concomitant]
     Indication: ALLERGY PROPHYLAXIS
     Dosage: UNK UNK, UNK
     Route: 048
  10. BAYASPIRIN [Concomitant]
     Indication: PROPHYLAXIS
     Dosage: UNK UNK, UNK
     Route: 048
  11. GLUCONSAN K [Concomitant]
     Indication: ELECTROLYTE IMBALANCE
     Dosage: UNK UNK, UNK
     Route: 048
  12. CRESTOR [Concomitant]
     Indication: HYPERLIPIDAEMIA
     Dosage: UNK UNK, UNK
     Route: 048
  13. ARICEPT [Concomitant]
     Indication: DEMENTIA ALZHEIMER^S TYPE
     Dosage: UNK UNK, UNK
     Route: 048
     Dates: end: 20120907
  14. MEMANTINE HYDROCHLORIDE [Concomitant]
     Indication: DEMENTIA ALZHEIMER^S TYPE
     Dosage: UNK UNK, UNK
     Route: 048
     Dates: end: 20120907
  15. GRAMALIL [Concomitant]
     Indication: CEREBRAL INFARCTION
     Dosage: UNK UNK, UNK
     Route: 048
  16. CLOSTRIDIUM BUTYRICUM [Concomitant]
     Indication: DISBACTERIOSIS
     Dosage: UNK UNK, UNK
     Route: 048
     Dates: start: 20120901, end: 20120921
  17. NOVORAPID [Concomitant]
     Indication: DIABETES MELLITUS
     Dosage: UNK UNK, UNK
     Route: 051
     Dates: start: 20120828
  18. CEFTAZIDIME HYDRATE [Concomitant]
     Indication: INFECTION
     Dosage: UNK UNK, UNK
     Route: 042
     Dates: start: 20120925, end: 20120927
  19. AZTREONAM [Concomitant]
     Indication: RETROPERITONEAL ABSCESS
     Dosage: UNK UNK, UNK
     Route: 051
  20. CLINDAMYCIN PHOSPHATE [Concomitant]
     Indication: RETROPERITONEAL ABSCESS
     Dosage: UNK UNK, UNK
     Route: 051
     Dates: start: 20120907, end: 20120921
  21. ZOSYN [Concomitant]
     Indication: RETROPERITONEAL ABSCESS
     Dosage: UNK UNK, UNK
     Route: 042
     Dates: start: 20120827, end: 20120907
  22. VANCOMYCIN [Concomitant]
     Indication: RETROPERITONEAL ABSCESS
     Dosage: UNK UNK, UNK
     Dates: start: 20120831, end: 20120905
  23. VANCOMYCIN [Concomitant]
     Dosage: 2.5 UNK, UNK
     Dates: start: 20120906, end: 20120907

REACTIONS (4)
  - Cardiac failure congestive [Fatal]
  - Sepsis [Fatal]
  - Urinary tract infection [Fatal]
  - Eosinophilic pneumonia acute [Recovering/Resolving]
